FAERS Safety Report 9562410 (Version 3)
Quarter: 2014Q3

REPORT INFORMATION
  Report Type: Spontaneous
  Country: US (occurrence: US)
  Receive Date: 20130927
  Receipt Date: 20140805
  Transmission Date: 20150326
  Serious: Yes (Hospitalization, Disabling, Other)
  Sender: FDA-Public Use
  Company Number: US-009507513-1309USA012063

PATIENT
  Sex: Female
  Weight: 82.99 kg

DRUGS (2)
  1. NUVARING [Suspect]
     Active Substance: ETHINYL ESTRADIOL\ETONOGESTREL
     Indication: WEIGHT INCREASED
  2. NUVARING [Suspect]
     Active Substance: ETHINYL ESTRADIOL\ETONOGESTREL
     Indication: CONTRACEPTION
     Dosage: 0.12-0.015 MG/24 HR; ONE RING FOR 3 WEEKS, REMOVE FOR 1 WEEK AND REPEAT WITH A NEW RING
     Route: 067
     Dates: start: 20110412, end: 20111016

REACTIONS (19)
  - Device expulsion [Unknown]
  - Inappropriate schedule of drug administration [Unknown]
  - Hot flush [Unknown]
  - Bipolar disorder [Unknown]
  - Bacterial infection [Unknown]
  - Pain in extremity [Unknown]
  - Inappropriate schedule of drug administration [Unknown]
  - Deep vein thrombosis [Unknown]
  - Dyspnoea [Unknown]
  - Pelvic pain [Unknown]
  - Pain [Unknown]
  - Device expulsion [Unknown]
  - Dysmenorrhoea [Unknown]
  - Chills [Unknown]
  - Breast tenderness [Unknown]
  - Pulmonary embolism [Unknown]
  - Angina pectoris [Unknown]
  - Dry skin [Unknown]
  - Sleep apnoea syndrome [Unknown]

NARRATIVE: CASE EVENT DATE: 2011
